FAERS Safety Report 25271165 (Version 1)
Quarter: 2025Q2

REPORT INFORMATION
  Report Type: Report from Study
  Country: US (occurrence: US)
  Receive Date: 20250506
  Receipt Date: 20250506
  Transmission Date: 20250716
  Serious: Yes (Other)
  Sender: ALEXION PHARMACEUTICALS
  Company Number: US-AstraZeneca-CH-00861992A

PATIENT

DRUGS (1)
  1. GLYCOPYRRONIUM\FORMOTEROL FUMARATE [Suspect]
     Active Substance: GLYCOPYRRONIUM\FORMOTEROL FUMARATE
     Route: 065

REACTIONS (1)
  - Autoimmune disorder [Unknown]
